FAERS Safety Report 6537366-2 (Version None)
Quarter: 2010Q1

REPORT INFORMATION
  Report Type: 
  Country: None (occurrence: None)
  Receive Date: 20100114
  Receipt Date: 20100108
  Transmission Date: 20100710
  Serious: Yes (Other)
  Sender: FDA-Public Use
  Company Number: AU-BRISTOL-MYERS SQUIBB COMPANY-14918437

PATIENT
  Age: 1 Year
  Sex: Female
  Weight: 3 kg

DRUGS (3)
  1. EFAVIRENZ [Suspect]
     Route: 064
  2. TRUVADA [Suspect]
     Route: 064
  3. RETROVIR [Suspect]
     Dosage: 1ST COURSE TAKEN ORALLY 2ND COURSE TAKEN IV
     Route: 064

REACTIONS (1)
  - HYPOPLASTIC RIGHT HEART SYNDROME [None]
